FAERS Safety Report 22534283 (Version 1)
Quarter: 2023Q2

REPORT INFORMATION
  Report Type: Report from Study
  Country: US (occurrence: US)
  Receive Date: 20230608
  Receipt Date: 20230608
  Transmission Date: 20230721
  Serious: Yes (Other)
  Sender: FDA-Public Use
  Company Number: US-ABBVIE-4753507

PATIENT
  Sex: Male

DRUGS (1)
  1. SKYRIZI [Suspect]
     Active Substance: RISANKIZUMAB-RZAA
     Indication: Psoriasis
     Route: 058
     Dates: start: 20221031

REACTIONS (10)
  - Benign neoplasm [Unknown]
  - Renal cyst [Unknown]
  - Appendiceal mucocoele [Unknown]
  - Hepatic cyst [Unknown]
  - Abdominal pain upper [Unknown]
  - Pancreatic cyst [Unknown]
  - Pain in extremity [Unknown]
  - Colitis [Unknown]
  - Insomnia [Unknown]
  - Diverticulitis [Unknown]
